FAERS Safety Report 16421050 (Version 1)
Quarter: 2019Q3

REPORT INFORMATION
  Report Type: Spontaneous
  Country: US (occurrence: US)
  Receive Date: 20190611
  Receipt Date: 20190611
  Transmission Date: 20191004
  Serious: Yes (Other)
  Sender: FDA-Public Use
  Company Number: None

PATIENT
  Age: 65 Year
  Sex: Female
  Weight: 68.4 kg

DRUGS (8)
  1. CALCIUM [Concomitant]
     Active Substance: CALCIUM
  2. NOVOLOG [Concomitant]
     Active Substance: INSULIN ASPART
  3. ROSUVASTATIN. [Concomitant]
     Active Substance: ROSUVASTATIN
  4. BD NANO PEN NEEDLES [Concomitant]
  5. ONE TOUCH ULTRA BLUE TEST STRIPS [Concomitant]
  6. VITAMIN D3 [Concomitant]
     Active Substance: CHOLECALCIFEROL
  7. TRESIBA [Suspect]
     Active Substance: INSULIN DEGLUDEC
     Indication: DIABETES MELLITUS
     Route: 058
     Dates: start: 20180531
  8. ONE TOUCH ULTRA 2 GLUCOMETER [Concomitant]

REACTIONS (1)
  - Injection site discolouration [None]

NARRATIVE: CASE EVENT DATE: 20190102
